FAERS Safety Report 16029253 (Version 1)
Quarter: 2019Q1

REPORT INFORMATION
  Report Type: Spontaneous
  Country: US (occurrence: US)
  Receive Date: 20190204
  Receipt Date: 20190204
  Transmission Date: 20190418
  Serious: Yes (Hospitalization)
  Sender: FDA-Public Use
  Company Number: None

PATIENT
  Age: 74 Year
  Sex: Female

DRUGS (1)
  1. COPAXONE [Suspect]
     Active Substance: GLATIRAMER ACETATE
     Dosage: ?          OTHER  ?
     Route: 058
     Dates: start: 201902

REACTIONS (2)
  - Feeling abnormal [None]
  - Inability to afford medication [None]

NARRATIVE: CASE EVENT DATE: 20190204
